FAERS Safety Report 7047629-2 (Version None)
Quarter: 2010Q4

REPORT INFORMATION
  Report Type: 
  Country: None (occurrence: None)
  Receive Date: 20101015
  Receipt Date: 20101004
  Transmission Date: 20110411
  Serious: Yes (Hospitalization)
  Sender: FDA-Public Use
  Company Number: US-WATSON-2010-13206

PATIENT
  Sex: Female
  Weight: 23.58 kg

DRUGS (26)
  1. FENTANYL-50 [Suspect]
     Indication: PAIN IN EXTREMITY
     Dosage: 50 MCG PATCH ONCE WEEKLY
     Route: 062
     Dates: start: 20100927
  2. FENTANYL-50 [Suspect]
     Indication: PAIN
     Dosage: 1 PATCH Q 72 HRS
     Route: 062
     Dates: start: 20100101
  3. FENTANYL-50 [Suspect]
     Dosage: 1 PATCH Q 72 HRS
     Route: 062
     Dates: start: 20100601
  4. FENTANYL-50 [Suspect]
     Dosage: STARTED WITH 1 PATCH Q 72 HOURS AND NOW 1 PATCH Q 48 HRS
     Route: 062
     Dates: start: 20100101
  5. FENTANYL-75 [Suspect]
     Indication: PAIN
     Dosage: 75 MCG PATCH Q 3 DAYS
     Route: 062
     Dates: start: 20100101
  6. FENTANYL-75 [Suspect]
     Dosage: 75 MCG PATCH Q 3 DAYS
     Route: 062
     Dates: end: 20100601
  7. LORTAB [Concomitant]
     Indication: PRODUCT USED FOR UNKNOWN INDICATION
     Dosage: 10 MG Q 6 HOURS WHENEVER NECESSARY
     Route: 048
     Dates: start: 20100601
  8. LORTAB [Concomitant]
     Dosage: ^10 PO TID-QID PRN^
     Route: 048
  9. ATIVAN [Concomitant]
     Indication: PRODUCT USED FOR UNKNOWN INDICATION
     Dosage: 2 MG, QID
     Route: 048
     Dates: start: 20100601
  10. ATIVAN [Concomitant]
     Dosage: 1-2 MG TID PRN
     Route: 048
  11. ROBAXIN [Concomitant]
     Indication: PRODUCT USED FOR UNKNOWN INDICATION
     Dosage: 250 MG, BID
     Route: 048
     Dates: start: 20100701
  12. ROBAXIN [Concomitant]
     Dosage: 250 MG, Q 8 HOURS
     Route: 065
     Dates: start: 20100601
  13. ROBAXIN [Concomitant]
     Dosage: 250 MG, BID
     Route: 065
     Dates: end: 20100901
  14. ROBAXIN [Concomitant]
     Dosage: 500 MG, Q 8 HOURS
     Route: 048
     Dates: start: 20100601
  15. FRAGMIN [Concomitant]
     Indication: PRODUCT USED FOR UNKNOWN INDICATION
     Dosage: 5000 U, DAILY FOR 2 WEEKS
     Route: 058
     Dates: start: 20100701
  16. FRAGMIN [Concomitant]
     Dosage: 2500 U, DAILY FOR 10 DAYS
     Route: 058
     Dates: start: 20100601
  17. DEMECLOCYCLINE HCL [Concomitant]
     Indication: PRODUCT USED FOR UNKNOWN INDICATION
     Dosage: 75 MG, BID
     Route: 065
     Dates: start: 20100601
  18. NICOTROL [Concomitant]
     Indication: PRODUCT USED FOR UNKNOWN INDICATION
     Dosage: UNK
     Route: 062
     Dates: start: 20100601
  19. ALBUTEROL [Concomitant]
     Indication: PRODUCT USED FOR UNKNOWN INDICATION
     Dosage: NEBS QID
     Route: 055
  20. HYDROCODONE [Concomitant]
     Indication: PAIN
     Dosage: 10 MG EVERY 4 HOURS PRN PAIN
     Route: 048
     Dates: start: 20100601
  21. LORAZEPAM [Concomitant]
     Indication: PRODUCT USED FOR UNKNOWN INDICATION
     Dosage: 2 MG, QID
     Route: 048
     Dates: start: 20100601
  22. NORCO [Concomitant]
     Indication: PRODUCT USED FOR UNKNOWN INDICATION
     Dosage: 7.5 MG EVERY 6 HOURS
     Route: 048
     Dates: start: 20100701
  23. NICODERM [Concomitant]
     Indication: PRODUCT USED FOR UNKNOWN INDICATION
     Dosage: 7 MG FOR 2 WEEKS
     Route: 062
     Dates: start: 20100701
  24. VITAMIN D3 [Concomitant]
     Indication: PRODUCT USED FOR UNKNOWN INDICATION
     Dosage: 1000 U, DAILY
     Route: 065
     Dates: start: 20100701
  25. LAMISIL                            /00992601/ [Concomitant]
     Indication: PRODUCT USED FOR UNKNOWN INDICATION
     Dosage: 250 MG, DAILY
     Route: 048
     Dates: start: 20100701
  26. KEFLEX [Concomitant]
     Indication: PRODUCT USED FOR UNKNOWN INDICATION
     Dosage: 500 MG, TID
     Route: 048

REACTIONS (24)
  - ANAEMIA OF CHRONIC DISEASE [None]
  - BLADDER DILATATION [None]
  - BLOOD CULTURE POSITIVE [None]
  - BLOOD PRESSURE INCREASED [None]
  - CHRONIC OBSTRUCTIVE PULMONARY DISEASE [None]
  - COLD SWEAT [None]
  - DECUBITUS ULCER [None]
  - DEPRESSED LEVEL OF CONSCIOUSNESS [None]
  - DISEASE PROGRESSION [None]
  - DRUG INEFFECTIVE [None]
  - DYSPNOEA [None]
  - HYPONATRAEMIA [None]
  - JOINT CONTRACTURE [None]
  - LEUKOCYTOSIS [None]
  - LIMB DEFORMITY [None]
  - LOWER LIMB FRACTURE [None]
  - MULTIPLE FRACTURES [None]
  - MUSCLE CONTRACTURE [None]
  - NAIL DISORDER [None]
  - NEUROGENIC BLADDER [None]
  - OSTEOGENESIS IMPERFECTA [None]
  - SKIN CANDIDA [None]
  - SKIN ULCER [None]
  - TIBIA FRACTURE [None]
